FAERS Safety Report 8580252-7 (Version None)
Quarter: 2012Q3

REPORT INFORMATION
  Report Type: 
  Country: None (occurrence: None)
  Receive Date: 20120808
  Receipt Date: 20120723
  Transmission Date: 20120928
  Serious: Yes (Other)
  Sender: FDA-Public Use
  Company Number: CHPA2012US016593

PATIENT
  Age: 11 Year
  Sex: Female

DRUGS (2)
  1. TRANSDERM SCOP [Suspect]
     Indication: NAUSEA
     Dosage: UNK, UNK
     Route: 062
  2. CHEMOTHERAPEUTICS [Concomitant]
     Indication: ACUTE MYELOID LEUKAEMIA
     Dosage: UNK, UNK

REACTIONS (4)
  - FALL [None]
  - PUPIL FIXED [None]
  - HEAD INJURY [None]
  - MYDRIASIS [None]
